FAERS Safety Report 22619274 (Version 1)
Quarter: 2023Q2

REPORT INFORMATION
  Report Type: Spontaneous
  Country: US (occurrence: US)
  Receive Date: 20230620
  Receipt Date: 20230620
  Transmission Date: 20230721
  Serious: No
  Sender: FDA-Public Use
  Company Number: US-drreddys-SPO/USA/23/0165451

PATIENT
  Age: 33 Year
  Sex: Female

DRUGS (2)
  1. ZENATANE [Suspect]
     Active Substance: ISOTRETINOIN
     Indication: Acne
     Dosage: RMA ISSUE DATE: 25 JANUARY 2023 03:41:39 PM, 22 MARCH 2023 03:27:44 PM.
  2. ZENATANE [Suspect]
     Active Substance: ISOTRETINOIN
     Dosage: RMA ISSUE DATE: 23 NOVEMBER 2022 12:52:01 PM, 02 JANUARY 2023 02:23:17 PM.

REACTIONS (1)
  - Treatment noncompliance [Unknown]
